FAERS Safety Report 5155539-0 (Version None)
Quarter: 2006Q4

REPORT INFORMATION
  Report Type: 
  Country: None (occurrence: None)
  Receive Date: 20061114
  Receipt Date: 20061106
  Transmission Date: 20070319
  Serious: Yes (Death, Other)
  Sender: FDA-Public Use
  Company Number: 163-20785-06080085

PATIENT
  Age: 45 Year
  Sex: Female

DRUGS (1)
  1. THALOMID [Suspect]
     Indication: MENINGIOMA MALIGNANT
     Dosage: 300 MG, 3 IN 1 D, ORAL
     Route: 048
     Dates: start: 20060619

REACTIONS (1)
  - METASTATIC MALIGNANT MELANOMA [None]
